FAERS Safety Report 19046853 (Version 2)
Quarter: 2021Q2

REPORT INFORMATION
  Report Type: Spontaneous
  Country: JP (occurrence: JP)
  Receive Date: 20210323
  Receipt Date: 20210401
  Transmission Date: 20210717
  Serious: Yes (Hospitalization, Other)
  Sender: FDA-Public Use
  Company Number: JP-DSJP-DSJ-2020-136786

PATIENT
  Age: 72 Year
  Sex: Male
  Weight: 80 kg

DRUGS (12)
  1. LIXIANA OD TABLETS 30MG [Suspect]
     Active Substance: EDOXABAN TOSYLATE
     Indication: DEEP VEIN THROMBOSIS
     Dosage: 30MG/BODY, QD
     Route: 048
     Dates: start: 20200409
  2. LANSOPRAZOLE. [Concomitant]
     Active Substance: LANSOPRAZOLE
     Dosage: 30MG/BODY, QD
     Route: 048
     Dates: start: 20191218
  3. OXYCODONE                          /00045603/ [Concomitant]
     Active Substance: OXYCODONE
     Dosage: 15MG/BODY, BID
     Route: 048
     Dates: start: 20201009, end: 20201104
  4. ALOXI [Concomitant]
     Active Substance: PALONOSETRON HYDROCHLORIDE
     Dosage: 0.75MG/BODY, 2020/10/23
     Route: 042
     Dates: start: 20201023
  5. ENHERTU [Suspect]
     Active Substance: FAM-TRASTUZUMAB DERUXTECAN-NXKI
     Dosage: 400 MG, 2020/11/19
     Route: 041
     Dates: start: 20201119, end: 20201119
  6. CALONAL [Concomitant]
     Active Substance: ACETAMINOPHEN
     Dosage: 600MG/BODY, TID
     Route: 048
     Dates: start: 20200525
  7. SUCRALFATE. [Concomitant]
     Active Substance: SUCRALFATE
     Dosage: 1 DF, TID
     Route: 048
     Dates: start: 20201004
  8. FENTANYL. [Concomitant]
     Active Substance: FENTANYL
     Dosage: 1.5 MG, QD
     Dates: start: 20201105
  9. ENHERTU [Suspect]
     Active Substance: FAM-TRASTUZUMAB DERUXTECAN-NXKI
     Indication: GASTRIC CANCER
     Dosage: 500 MG, 2020/10/23
     Route: 041
     Dates: start: 20201023, end: 20201023
  10. DEXART [Concomitant]
     Active Substance: DEXAMETHASONE SODIUM PHOSPHATE
     Dosage: 6.6MG/BODY, 2020/10/23
     Route: 042
     Dates: start: 20201023
  11. DENOTAS [Concomitant]
     Active Substance: CALCIUM CARBONATE\CHOLECALCIFEROL\MAGNESIUM CARBONATE
     Dosage: 2 DF, QD
     Route: 048
     Dates: start: 20200605
  12. ENHERTU [Suspect]
     Active Substance: FAM-TRASTUZUMAB DERUXTECAN-NXKI
     Dosage: 300 MG, 2020/12/17, 2021/01/08
     Route: 041
     Dates: start: 20201217, end: 20210108

REACTIONS (12)
  - Decreased appetite [Recovered/Resolved]
  - Nausea [Recovered/Resolved]
  - Pyrexia [Recovered/Resolved]
  - Haemoglobin decreased [Recovered/Resolved]
  - Blood pressure decreased [Unknown]
  - Platelet count decreased [Recovered/Resolved]
  - Febrile neutropenia [Recovered/Resolved]
  - Haematochezia [Recovered/Resolved]
  - Neutrophil count decreased [Recovered/Resolved]
  - Vomiting [Recovered/Resolved]
  - Fall [Unknown]
  - Contusion [Unknown]

NARRATIVE: CASE EVENT DATE: 20201029
